FAERS Safety Report 26215266 (Version 1)
Quarter: 2025Q4

REPORT INFORMATION
  Report Type: Report from Study
  Country: US (occurrence: US)
  Receive Date: 20251230
  Receipt Date: 20251230
  Transmission Date: 20260118
  Serious: Yes (Other)
  Sender: ALEXION PHARMACEUTICALS
  Company Number: US-AstraZeneca-CH-01023121A

PATIENT
  Age: 69 Year
  Sex: Male

DRUGS (1)
  1. DAPAGLIFLOZIN [Suspect]
     Active Substance: DAPAGLIFLOZIN
     Dosage: UNK
     Route: 065

REACTIONS (6)
  - Head injury [Unknown]
  - Headache [Unknown]
  - Cerebral haemorrhage [Unknown]
  - Haemorrhage [Unknown]
  - Renal disorder [Unknown]
  - Amnesia [Unknown]

NARRATIVE: CASE EVENT DATE: 20250410
